FAERS Safety Report 20558073 (Version 1)
Quarter: 2022Q1

REPORT INFORMATION
  Report Type: Spontaneous
  Country: US (occurrence: US)
  Receive Date: 20220307
  Receipt Date: 20220307
  Transmission Date: 20220423
  Serious: No
  Sender: FDA-Public Use
  Company Number: US-KVK-TECH, INC-20210700085

PATIENT

DRUGS (4)
  1. CYCLOBENZAPRINE [Suspect]
     Active Substance: CYCLOBENZAPRINE
     Indication: Headache
     Dosage: 5 MILLIGRAM, QD
     Route: 065
     Dates: start: 202106, end: 20210617
  2. CYCLOBENZAPRINE [Suspect]
     Active Substance: CYCLOBENZAPRINE
     Indication: Neck pain
     Dosage: 5 MILLIGRAM, BID
     Route: 065
     Dates: start: 20210618, end: 20210626
  3. CYCLOBENZAPRINE [Suspect]
     Active Substance: CYCLOBENZAPRINE
     Dosage: 5 MILLIGRAM, TID (FOR A WEAK)
     Route: 065
     Dates: start: 20210627, end: 202107
  4. CYCLOBENZAPRINE [Suspect]
     Active Substance: CYCLOBENZAPRINE
     Dosage: 5 MILLIGRAM, BID
     Route: 065
     Dates: start: 202107

REACTIONS (2)
  - Taste disorder [Not Recovered/Not Resolved]
  - Dry mouth [Recovering/Resolving]

NARRATIVE: CASE EVENT DATE: 20210701
